FAERS Safety Report 16864800 (Version 1)
Quarter: 2019Q3

REPORT INFORMATION
  Report Type: Report from Study
  Country: CA (occurrence: CA)
  Receive Date: 20190929
  Receipt Date: 20190929
  Transmission Date: 20191005
  Serious: Yes (Other)
  Sender: FDA-Public Use
  Company Number: PHHY2015CA022098

PATIENT
  Age: 54 Year
  Sex: Male

DRUGS (3)
  1. CRESTOR [Concomitant]
     Active Substance: ROSUVASTATIN CALCIUM
     Indication: PRODUCT USED FOR UNKNOWN INDICATION
     Route: 065
  2. DELATESTROL [Concomitant]
     Indication: PRODUCT USED FOR UNKNOWN INDICATION
     Route: 065
  3. SANDOSTATIN LAR DEPOT [Suspect]
     Active Substance: OCTREOTIDE ACETATE
     Indication: ACROMEGALY
     Dosage: 30 MG, QMO (ONCE A MONTH)
     Route: 030
     Dates: start: 20110601, end: 201802

REACTIONS (11)
  - Malaise [Unknown]
  - Lower respiratory tract infection [Unknown]
  - Influenza [Unknown]
  - Sciatica [Unknown]
  - Streptococcal infection [Unknown]
  - Nasopharyngitis [Unknown]
  - Oropharyngeal pain [Unknown]
  - Blood pressure increased [Unknown]
  - Productive cough [Unknown]
  - Sputum discoloured [Unknown]
  - Aphonia [Unknown]

NARRATIVE: CASE EVENT DATE: 2015
